FAERS Safety Report 6384430-7 (Version None)
Quarter: 2009Q4

REPORT INFORMATION
  Report Type: 
  Country: None (occurrence: None)
  Receive Date: 20091001
  Receipt Date: 20090916
  Transmission Date: 20100525
  Serious: Yes (Other)
  Sender: FDA-Public Use
  Company Number: JP-PFIZER INC-2009263575

PATIENT
  Age: 33 Year

DRUGS (11)
  1. SOLANAX [Suspect]
     Route: 048
  2. RIVOTRIL [Suspect]
     Route: 048
  3. HIRNAMIN [Suspect]
     Route: 048
  4. SILECE [Suspect]
  5. ZYPREXA [Suspect]
     Route: 048
  6. PHENOBARBITAL [Suspect]
  7. PROMETHAZINE [Suspect]
  8. CHLORPROMAZINE [Suspect]
  9. CLOMIPRAMINE [Suspect]
  10. LENDORMIN [Concomitant]
     Route: 048
  11. VEGETAMIN [Concomitant]
     Route: 048

REACTIONS (3)
  - DRUG TOXICITY [None]
  - INTENTIONAL OVERDOSE [None]
  - SUICIDE ATTEMPT [None]
